FAERS Safety Report 10435175 (Version 3)
Quarter: 2014Q4

REPORT INFORMATION
  Report Type: Spontaneous
  Country: JP (occurrence: JP)
  Receive Date: 20140907
  Receipt Date: 20141110
  Transmission Date: 20150528
  Serious: Yes (Hospitalization)
  Sender: FDA-Public Use
  Company Number: PHHY2012JP134365

PATIENT
  Age: 29 Year
  Sex: Female

DRUGS (2)
  1. GLIVEC [Suspect]
     Active Substance: IMATINIB MESYLATE
     Indication: CHRONIC MYELOID LEUKAEMIA
     Dosage: 400 MG, QD
     Route: 048
     Dates: start: 200811
  2. GLIVEC [Suspect]
     Active Substance: IMATINIB MESYLATE
     Dosage: 600 MG, UNK
     Route: 048
     Dates: start: 200903, end: 201001

REACTIONS (8)
  - Muscle spasms [Not Recovered/Not Resolved]
  - Enteritis infectious [Recovering/Resolving]
  - Enteritis [Recovering/Resolving]
  - Oedema [Recovered/Resolved]
  - Vomiting [Not Recovered/Not Resolved]
  - Haemoglobin decreased [Recovered/Resolved]
  - Inflammatory bowel disease [Recovering/Resolving]
  - Nausea [Not Recovered/Not Resolved]

NARRATIVE: CASE EVENT DATE: 200811
